FAERS Safety Report 7215384-9 (Version None)
Quarter: 2011Q1

REPORT INFORMATION
  Report Type: 
  Country: None (occurrence: None)
  Receive Date: 20110105
  Receipt Date: 20110105
  Transmission Date: 20110831
  Serious: Yes (Hospitalization)
  Sender: FDA-Public Use
  Company Number: None

PATIENT
  Sex: Female
  Weight: 123.06 kg

DRUGS (2)
  1. PEMETREXED [Suspect]
     Dosage: 750 MG
  2. CISPLATIN [Suspect]
     Dosage: 75 MG

REACTIONS (7)
  - BLOOD CHLORIDE INCREASED [None]
  - PANCYTOPENIA [None]
  - ATELECTASIS [None]
  - ANAEMIA [None]
  - PATHOLOGICAL FRACTURE [None]
  - BLOOD CALCIUM DECREASED [None]
  - BLOOD POTASSIUM DECREASED [None]
